FAERS Safety Report 8929328 (Version 2)
Quarter: 2012Q4

REPORT INFORMATION
  Report Type: Spontaneous
  Country: PT (occurrence: None)
  Receive Date: 20121119
  Receipt Date: 20121130
  Transmission Date: 20130627
  Serious: Yes (Life-Threatening, Hospitalization)
  Sender: FDA-Public Use
  Company Number: FK201203334

PATIENT
  Age: 48 Year
  Sex: Female

DRUGS (5)
  1. CEFAZOLINA [Suspect]
     Indication: PROPHYLAXIS
     Route: 042
     Dates: start: 20121025, end: 20121025
  2. ALFENTANIL (ALFENTANIL) (ALFENTANIL) [Concomitant]
  3. PROPOFOL 1% (PROPOFOL) (PROPOFOL) [Concomitant]
  4. NEOSTIGMINE (NEOSTIGMINE) (NEOSTIGMINE) [Concomitant]
  5. HEPARIN (HEPARIN) (HEPARIN) [Concomitant]

REACTIONS (1)
  - Anaphylactic shock [None]
